FAERS Safety Report 6408795-2 (Version None)
Quarter: 2009Q4

REPORT INFORMATION
  Report Type: 
  Country: None (occurrence: None)
  Receive Date: 20091021
  Receipt Date: 20091019
  Transmission Date: 20100525
  Serious: Yes (Other)
  Sender: FDA-Public Use
  Company Number: A0812615A

PATIENT
  Age: 60 Year
  Sex: Female

DRUGS (2)
  1. BUPROPION HCL [Suspect]
     Indication: SMOKING CESSATION THERAPY
     Dosage: 150MG TWICE PER DAY
     Route: 048
     Dates: start: 20090601
  2. BUPROPION HCL [Concomitant]

REACTIONS (3)
  - DEPRESSION [None]
  - PRODUCT SUBSTITUTION ISSUE [None]
  - SUICIDAL IDEATION [None]
